FAERS Safety Report 5862083-1 (Version None)
Quarter: 2008Q3

REPORT INFORMATION
  Report Type: 
  Country: None (occurrence: None)
  Receive Date: 20080827
  Receipt Date: 20080827
  Transmission Date: 20090109
  Serious: Yes (Life-Threatening, Hospitalization, Other)
  Sender: FDA-Public Use
  Company Number: None

PATIENT
  Age: 43 Year
  Sex: Female
  Weight: 99.7913 kg

DRUGS (1)
  1. OFLOXACIN [Suspect]
     Indication: EAR INFECTION
     Dosage: 10 DROPS EACH EAR  2 TIMES DAILY
     Dates: start: 20080725, end: 20080731

REACTIONS (29)
  - ASTHENIA [None]
  - BURNING SENSATION [None]
  - CHILLS [None]
  - DIARRHOEA [None]
  - DIZZINESS [None]
  - DRY MOUTH [None]
  - DYSPHAGIA [None]
  - DYSPHONIA [None]
  - DYSPNOEA [None]
  - EAR DISORDER [None]
  - HEADACHE [None]
  - IRRITABILITY [None]
  - LIP SWELLING [None]
  - MUSCLE SPASMS [None]
  - NERVOUSNESS [None]
  - OROPHARYNGEAL PAIN [None]
  - PARAESTHESIA [None]
  - PHARYNGEAL DISORDER [None]
  - POLLAKIURIA [None]
  - PRURITUS [None]
  - PYREXIA [None]
  - RASH [None]
  - RESTLESSNESS [None]
  - SWELLING FACE [None]
  - THIRST [None]
  - THROAT IRRITATION [None]
  - THROAT TIGHTNESS [None]
  - TREMOR [None]
  - VAGINAL DISCHARGE [None]
